FAERS Safety Report 8329521-6 (Version None)
Quarter: 2012Q2

REPORT INFORMATION
  Report Type: 
  Country: None (occurrence: None)
  Receive Date: 20120502
  Receipt Date: 20120416
  Transmission Date: 20120825
  Serious: Yes (Other)
  Sender: FDA-Public Use
  Company Number: US-ROCHE-1061031

PATIENT

DRUGS (4)
  1. HERCEPTIN [Suspect]
     Indication: BREAST CANCER METASTATIC
     Dosage: AS LOADING DOSE IN CYCLE 1 (1 CYCLE WAS OF 3 WEEKS)
     Route: 042
  2. XELODA [Suspect]
     Indication: BREAST CANCER METASTATIC
     Route: 048
  3. VINORELBINE TARTRATE [Suspect]
     Indication: BREAST CANCER METASTATIC
     Route: 042
  4. HERCEPTIN [Suspect]
     Route: 042

REACTIONS (16)
  - NERVOUS SYSTEM DISORDER [None]
  - SENSORY DISTURBANCE [None]
  - MYALGIA [None]
  - NEUTROPENIA [None]
  - DYSPNOEA [None]
  - DEHYDRATION [None]
  - DIARRHOEA [None]
  - PALMAR-PLANTAR ERYTHRODYSAESTHESIA SYNDROME [None]
  - VOMITING [None]
  - BONE PAIN [None]
  - NAUSEA [None]
  - LEUKOPENIA [None]
  - ABDOMINAL PAIN [None]
  - FATIGUE [None]
  - STOMATITIS [None]
  - EXFOLIATIVE RASH [None]
